FAERS Safety Report 9857783 (Version 1)
Quarter: 2014Q1

REPORT INFORMATION
  Report Type: Spontaneous
  Country: US (occurrence: US)
  Receive Date: 20140131
  Receipt Date: 20140131
  Transmission Date: 20141002
  Serious: No
  Sender: FDA-Public Use
  Company Number: US-BIOGENIDEC-2014BI008584

PATIENT
  Sex: Female

DRUGS (9)
  1. TECFIDERA [Suspect]
     Indication: MULTIPLE SCLEROSIS
     Route: 048
     Dates: start: 20131224
  2. AMITRIPTYLINE HCL [Concomitant]
  3. ASPIR-81 [Concomitant]
  4. FEXOFENADINE HCL [Concomitant]
  5. LEVOTHYROXINE SODIUM [Concomitant]
  6. LOTENSIN HCT [Concomitant]
  7. METFORMIN HCL [Concomitant]
  8. PROZAC [Concomitant]
  9. TIZANIDINE HCL [Concomitant]

REACTIONS (1)
  - Headache [Unknown]
